FAERS Safety Report 15602615 (Version 2)
Quarter: 2018Q4

REPORT INFORMATION
  Report Type: Spontaneous
  Country: US (occurrence: US)
  Receive Date: 20181109
  Receipt Date: 20181127
  Transmission Date: 20190205
  Serious: No
  Sender: FDA-Public Use
  Company Number: US-PFIZER INC-2018459147

PATIENT
  Age: 46 Year
  Sex: Female

DRUGS (2)
  1. IBRANCE [Suspect]
     Active Substance: PALBOCICLIB
     Indication: BREAST CANCER
     Dosage: 125 MG, CYCLIC (DAILY DAYS 1 THROUGH 21 DAYS WITH 7 DAYS OFF)
     Route: 048
     Dates: start: 20181012
  2. IBRANCE [Suspect]
     Active Substance: PALBOCICLIB
     Dosage: 125 MG, CYCLIC (DAILY DAYS 1-21 DAYS WITH 7 DAYS OFF)
     Route: 048
     Dates: start: 201810

REACTIONS (4)
  - Pleural effusion [Unknown]
  - Myalgia [Unknown]
  - Alopecia [Unknown]
  - Bone pain [Unknown]

NARRATIVE: CASE EVENT DATE: 201810
